FAERS Safety Report 25356173 (Version 1)
Quarter: 2025Q2

REPORT INFORMATION
  Report Type: Spontaneous
  Country: LB (occurrence: LB)
  Receive Date: 20250525
  Receipt Date: 20250525
  Transmission Date: 20250716
  Serious: Yes (Hospitalization, Other)
  Sender: OXFORD PHARMACEUTICALS, LLC
  Company Number: LB-Oxford Pharmaceuticals, LLC-2177473

PATIENT
  Age: 62 Year
  Sex: Male

DRUGS (1)
  1. BACLOFEN [Suspect]
     Active Substance: BACLOFEN
     Indication: Gastrooesophageal reflux disease

REACTIONS (2)
  - Pancreatitis acute [Recovered/Resolved]
  - Off label use [Unknown]
